FAERS Safety Report 22720074 (Version 4)
Quarter: 2023Q4

REPORT INFORMATION
  Report Type: Report from Study
  Country: NL (occurrence: NL)
  Receive Date: 20230718
  Receipt Date: 20231116
  Transmission Date: 20240110
  Serious: Yes (Hospitalization)
  Sender: FDA-Public Use
  Company Number: NL-ABBVIE-5330087

PATIENT
  Sex: Male

DRUGS (11)
  1. CARBIDOPA\LEVODOPA [Suspect]
     Active Substance: CARBIDOPA\LEVODOPA
     Indication: Parkinson^s disease
     Dosage: MD 11.0 ML; CD 1.8 ML/H; ED 3.0 ML?REMAINS AT 16 HOURS?TEMPORARY STOP FOR ONE WEEK
     Route: 050
     Dates: start: 20230904, end: 20231109
  2. CARBIDOPA\LEVODOPA [Suspect]
     Active Substance: CARBIDOPA\LEVODOPA
     Dosage: MD 11.0 ML; CD 2.0 ML/H; ED 3.0 ML?REMAINS AT 16 HOURS
     Route: 050
     Dates: start: 20230711, end: 20230904
  3. CARBIDOPA\LEVODOPA [Suspect]
     Active Substance: CARBIDOPA\LEVODOPA
     Dosage: MD 8.0 ML; CD 2.0 ML/H; ED 3.0 ML?REMAINS AT 16 HOURS
     Route: 050
     Dates: start: 20230707, end: 20230711
  4. CARBIDOPA\LEVODOPA [Suspect]
     Active Substance: CARBIDOPA\LEVODOPA
     Dosage: LAST ADMIN DATE: JUL 2023, REMAINS AT 16 HOURS
     Route: 050
     Dates: start: 20230703
  5. PRADAXA [Concomitant]
     Active Substance: DABIGATRAN ETEXILATE MESYLATE
     Indication: Anticoagulant therapy
     Route: 048
     Dates: start: 20200731
  6. SINEMET [Concomitant]
     Active Substance: CARBIDOPA\LEVODOPA
     Indication: Parkinson^s disease
     Dosage: STRENGTH: 62.5 MG
     Route: 048
     Dates: start: 20221202, end: 20230704
  7. ACETAMINOPHEN\TRAMADOL [Concomitant]
     Active Substance: ACETAMINOPHEN\TRAMADOL
     Indication: Pain
     Dosage: 37.5/325 MG
     Route: 048
     Dates: start: 20220101
  8. CALCIUM\CHOLECALCIFEROL [Concomitant]
     Active Substance: CALCIUM\CHOLECALCIFEROL
     Indication: Vitamin D
     Dosage: 500MG/800IE
     Route: 048
     Dates: start: 20200117
  9. OMEPRAZOLE [Concomitant]
     Active Substance: OMEPRAZOLE
     Indication: Gastrointestinal disorder prophylaxis
     Dosage: STRENGTH: 20 MG
     Route: 048
     Dates: start: 20170124
  10. FLECAINIDE [Concomitant]
     Active Substance: FLECAINIDE
     Indication: Heart rate irregular
     Dosage: STRENGTH: 200 MG
     Route: 048
     Dates: start: 20220729
  11. MELOXICAM [Concomitant]
     Active Substance: MELOXICAM
     Indication: Osteoarthritis
     Route: 048
     Dates: start: 20201218

REACTIONS (22)
  - Embedded device [Recovered/Resolved]
  - Constipation [Not Recovered/Not Resolved]
  - Muscle rigidity [Not Recovered/Not Resolved]
  - Tension [Not Recovered/Not Resolved]
  - Dystonia [Not Recovered/Not Resolved]
  - Bradykinesia [Not Recovered/Not Resolved]
  - Pain [Recovered/Resolved]
  - Decreased appetite [Recovered/Resolved]
  - Weight decreased [Not Recovered/Not Resolved]
  - Freezing phenomenon [Not Recovered/Not Resolved]
  - Mood swings [Recovered/Resolved]
  - On and off phenomenon [Recovering/Resolving]
  - Stoma site discharge [Not Recovered/Not Resolved]
  - Cognitive disorder [Not Recovered/Not Resolved]
  - Abnormal dreams [Not Recovered/Not Resolved]
  - Incorrect dose administered [Not Recovered/Not Resolved]
  - Therapeutic product effect incomplete [Not Recovered/Not Resolved]
  - Poor quality sleep [Not Recovered/Not Resolved]
  - Memory impairment [Not Recovered/Not Resolved]
  - Bradykinesia [Not Recovered/Not Resolved]
  - Poor quality sleep [Not Recovered/Not Resolved]
  - Stoma site erythema [Not Recovered/Not Resolved]

NARRATIVE: CASE EVENT DATE: 20230101
